FAERS Safety Report 20008884 (Version 3)
Quarter: 2021Q4

REPORT INFORMATION
  Report Type: Spontaneous
  Country: US (occurrence: US)
  Receive Date: 20211028
  Receipt Date: 20211119
  Transmission Date: 20220303
  Serious: Yes (Other)
  Sender: FDA-Public Use
  Company Number: US-FLEXION THERAPEUTICS, INC.-2021FLS000126

PATIENT
  Sex: Male

DRUGS (1)
  1. ZILRETTA [Suspect]
     Active Substance: TRIAMCINOLONE ACETONIDE
     Indication: Product used for unknown indication
     Route: 014
     Dates: start: 202104, end: 202104

REACTIONS (3)
  - Osteomyelitis [Recovered/Resolved]
  - Fistula [Not Recovered/Not Resolved]
  - Culture positive [Recovered/Resolved]

NARRATIVE: CASE EVENT DATE: 20210101
